FAERS Safety Report 15037534 (Version 3)
Quarter: 2020Q3

REPORT INFORMATION
  Report Type: Spontaneous
  Country: PT (occurrence: PT)
  Receive Date: 20180620
  Receipt Date: 20200727
  Transmission Date: 20201102
  Serious: Yes (Other)
  Sender: FDA-Public Use
  Company Number: PT-ELI_LILLY_AND_COMPANY-PT201806006583

PATIENT
  Age: 16 Year
  Sex: Male

DRUGS (2)
  1. SOMATROPIN. [Suspect]
     Active Substance: SOMATROPIN
     Indication: DELAYED PUBERTY
     Dosage: UNK, UNKNOWN
     Route: 065
     Dates: start: 2012, end: 201607
  2. TESTOSTERONE ENANTATE [Suspect]
     Active Substance: TESTOSTERONE
     Indication: DELAYED PUBERTY
     Dosage: UNK UNK, UNKNOWN
     Route: 030
     Dates: end: 201601

REACTIONS (9)
  - Hyperphagia [Unknown]
  - Insulin resistance [Unknown]
  - Off label use [Unknown]
  - Aggression [Unknown]
  - Impulsive behaviour [Unknown]
  - Obesity [Unknown]
  - Stubbornness [Unknown]
  - Cognitive disorder [Unknown]
  - Sleep apnoea syndrome [Unknown]
